FAERS Safety Report 20468419 (Version 1)
Quarter: 2022Q1

REPORT INFORMATION
  Report Type: Spontaneous
  Country: US (occurrence: US)
  Receive Date: 20220214
  Receipt Date: 20220214
  Transmission Date: 20220424
  Serious: No
  Sender: FDA-Public Use
  Company Number: US-MYLANLABS-2022M1008606

PATIENT
  Age: 73 Year
  Sex: Male
  Weight: 90.72 kg

DRUGS (1)
  1. WIXELA INHUB [Suspect]
     Active Substance: FLUTICASONE PROPIONATE\SALMETEROL XINAFOATE
     Indication: Asthma
     Dosage: 500/50 MICROGRAM, QD)
     Route: 055
     Dates: start: 202112

REACTIONS (4)
  - Device mechanical issue [Unknown]
  - Device breakage [Unknown]
  - Off label use [Unknown]
  - Expired product administered [Unknown]

NARRATIVE: CASE EVENT DATE: 20211201
